FAERS Safety Report 5358389-5 (Version None)
Quarter: 2007Q2

REPORT INFORMATION
  Report Type: 
  Country: None (occurrence: None)
  Receive Date: 20070615
  Receipt Date: 20070607
  Transmission Date: 20071010
  Serious: Yes (Other)
  Sender: FDA-Public Use
  Company Number: PHRM2007FR01600

PATIENT
  Age: 64 Year
  Sex: Female

DRUGS (2)
  1. LIORESAL [Suspect]
     Indication: MUSCLE CONTRACTURE
     Dosage: 30 MG/DAY
     Route: 048
     Dates: start: 20070401, end: 20070604
  2. LORAZEPAM [Concomitant]
     Route: 048

REACTIONS (4)
  - ABDOMINAL PAIN [None]
  - DEPRESSION [None]
  - HALLUCINATION [None]
  - INSOMNIA [None]
